FAERS Safety Report 21848357 (Version 1)
Quarter: 2023Q1

REPORT INFORMATION
  Report Type: Spontaneous
  Country: CA (occurrence: None)
  Receive Date: 20230110
  Receipt Date: 20230110
  Transmission Date: 20230418
  Serious: Yes (Disabling, Other)
  Sender: FDA-Public Use
  Company Number: None

PATIENT
  Age: 34 Year
  Sex: Female
  Weight: 54 kg

DRUGS (11)
  1. MINOXIDIL 5 PERCENT (FOR WOMEN) [Suspect]
     Active Substance: MINOXIDIL
     Indication: Alopecia
     Dosage: FREQUENCY : AT BEDTIME;?
     Route: 061
     Dates: end: 20221116
  2. GLUTATHIONE [Concomitant]
     Active Substance: GLUTATHIONE
  3. VITAMIN D [Concomitant]
     Active Substance: VITAMIN D NOS
  4. VITAMIN E [Concomitant]
     Active Substance: .ALPHA.-TOCOPHEROL
  5. IRON [Concomitant]
     Active Substance: IRON
  6. ZINC [Concomitant]
     Active Substance: ZINC
  7. CYSTEINE [Concomitant]
     Active Substance: CYSTEINE
  8. CARNITINE [Concomitant]
     Active Substance: CARNITINE
  9. MAGNESIUM [Concomitant]
     Active Substance: MAGNESIUM
  10. Flax Oil [Concomitant]
  11. MTC oil [Concomitant]

REACTIONS (24)
  - Fatigue [None]
  - Nausea [None]
  - Vomiting [None]
  - Gait disturbance [None]
  - Limb discomfort [None]
  - Vision blurred [None]
  - Palpitations [None]
  - Anxiety [None]
  - Photophobia [None]
  - Hyperacusis [None]
  - Muscle twitching [None]
  - Balance disorder [None]
  - Confusional state [None]
  - Aphasia [None]
  - Amnesia [None]
  - Hypoaesthesia [None]
  - Paraesthesia [None]
  - Weight decreased [None]
  - Thirst [None]
  - Dehydration [None]
  - Therapy cessation [None]
  - Menstrual disorder [None]
  - Burning sensation [None]
  - Loss of personal independence in daily activities [None]

NARRATIVE: CASE EVENT DATE: 20221109
